FAERS Safety Report 7907543-4 (Version None)
Quarter: 2011Q4

REPORT INFORMATION
  Report Type: 
  Country: None (occurrence: None)
  Receive Date: 20111110
  Receipt Date: 20111031
  Transmission Date: 20120403
  Serious: Yes (Hospitalization, Other)
  Sender: FDA-Public Use
  Company Number: PHHY2011JP93308

PATIENT
  Age: 79 Year
  Sex: Male

DRUGS (5)
  1. ZOMETA [Suspect]
     Dosage: 4 MG -05 TIMES
     Dates: start: 20080301
  2. ZOMETA [Suspect]
     Dosage: 4 MG, EVERY 3 WEEKS
     Dates: start: 20100201
  3. ZOMETA [Suspect]
     Dosage: 4 MG, EVERY 3 WEEKS
     Dates: start: 20100301
  4. ZOMETA [Suspect]
     Indication: METASTASES TO BONE
  5. ZOMETA [Suspect]
     Dosage: 4 MG, EVERY 3 WEEKS
     Dates: start: 20100101

REACTIONS (10)
  - GINGIVAL PAIN [None]
  - METASTASES TO SPINE [None]
  - INFLAMMATION [None]
  - OSTEONECROSIS OF JAW [None]
  - GINGIVAL SWELLING [None]
  - PERIODONTITIS [None]
  - IMPAIRED HEALING [None]
  - RESORPTION BONE INCREASED [None]
  - TOOTHACHE [None]
  - LOOSE TOOTH [None]
